FAERS Safety Report 15473065 (Version 1)
Quarter: 2018Q4

REPORT INFORMATION
  Report Type: Spontaneous
  Country: US (occurrence: US)
  Receive Date: 20181008
  Receipt Date: 20181008
  Transmission Date: 20190205
  Serious: No
  Sender: FDA-Public Use
  Company Number: US-PFIZER INC-2018398005

PATIENT
  Age: 66 Year
  Sex: Female

DRUGS (1)
  1. AROMASIN [Suspect]
     Active Substance: EXEMESTANE
     Indication: NEOPLASM MALIGNANT
     Dosage: 25 MG, UNK
     Dates: start: 20161011, end: 20170201

REACTIONS (3)
  - Irritability [Unknown]
  - Mood swings [Unknown]
  - Insomnia [Unknown]

NARRATIVE: CASE EVENT DATE: 20170201
